FAERS Safety Report 16923974 (Version 2)
Quarter: 2019Q4

REPORT INFORMATION
  Report Type: Spontaneous
  Country: US (occurrence: US)
  Receive Date: 20191016
  Receipt Date: 20191104
  Transmission Date: 20200122
  Serious: No
  Sender: FDA-Public Use
  Company Number: US-HORIZON-RAV-0331-2019

PATIENT
  Age: 64 Year
  Sex: Female

DRUGS (5)
  1. RAVICTI [Suspect]
     Active Substance: GLYCEROL PHENYLBUTYRATE
     Indication: ORNITHINE TRANSCARBAMOYLASE DEFICIENCY
     Dosage: 3 ML TID
     Route: 048
     Dates: start: 201707
  2. CALCIUM [Concomitant]
     Active Substance: CALCIUM
  3. CARDIZEM [Concomitant]
     Active Substance: DILTIAZEM HYDROCHLORIDE
  4. VITAMIN D [Concomitant]
     Active Substance: VITAMIN D NOS
  5. CITRULLINE [Concomitant]
     Active Substance: CITRULLINE
     Dosage: 100 MG

REACTIONS (2)
  - Exposure to toxic agent [Unknown]
  - Feeling abnormal [Unknown]
